FAERS Safety Report 6752501-9 (Version None)
Quarter: 2010Q2

REPORT INFORMATION
  Report Type: 
  Country: None (occurrence: None)
  Receive Date: 20100602
  Receipt Date: 20100524
  Transmission Date: 20101027
  Serious: Yes (Hospitalization)
  Sender: FDA-Public Use
  Company Number: US-AMGEN-KDL414059

PATIENT
  Sex: Male

DRUGS (4)
  1. ENBREL [Suspect]
     Indication: RHEUMATOID ARTHRITIS
     Route: 058
  2. METHOTREXATE [Concomitant]
     Route: 048
     Dates: start: 20100319
  3. HUMIRA [Concomitant]
     Dates: start: 20070101, end: 20070101
  4. ORENCIA [Concomitant]
     Dates: start: 20091101, end: 20100301

REACTIONS (6)
  - ADRENAL DISORDER [None]
  - COUGH [None]
  - DRUG INEFFECTIVE [None]
  - THERAPEUTIC RESPONSE DECREASED [None]
  - UMBILICAL HERNIA [None]
  - URTICARIA [None]
